FAERS Safety Report 24319165 (Version 1)
Quarter: 2024Q3

REPORT INFORMATION
  Report Type: Report from Study
  Country: US (occurrence: US)
  Receive Date: 20240913
  Receipt Date: 20240913
  Transmission Date: 20241017
  Serious: Yes (Other)
  Sender: ABBVIE
  Company Number: US-ABBVIE-5916445

PATIENT
  Sex: Female

DRUGS (1)
  1. RINVOQ [Suspect]
     Active Substance: UPADACITINIB
     Indication: Colitis ulcerative
     Dosage: STRENGTH 45 MG
     Route: 048
     Dates: start: 202407

REACTIONS (2)
  - Spinal nerve stimulator implantation [Unknown]
  - Headache [Unknown]

NARRATIVE: CASE EVENT DATE: 20240101
